FAERS Safety Report 4622293-8 (Version None)
Quarter: 2005Q1

REPORT INFORMATION
  Report Type: 
  Country: None (occurrence: None)
  Receive Date: 20050324
  Receipt Date: 20050324
  Transmission Date: 20050727
  Serious: Yes (Other)
  Sender: FDA-Public Use
  Company Number: None

PATIENT
  Age: 11 Year
  Sex: Male
  Weight: 40.3701 kg

DRUGS (2)
  1. STRATTERA [Suspect]
     Indication: ATTENTION DEFICIT/HYPERACTIVITY DISORDER
     Dosage: ONCE A DAY 18 MG, 36 MG; 40 MG AND 50 MG ORAL
     Route: 048
     Dates: start: 20041011, end: 20050201
  2. CONCERTA [Concomitant]

REACTIONS (3)
  - AGGRESSION [None]
  - EDUCATIONAL PROBLEM [None]
  - MEMORY IMPAIRMENT [None]
